FAERS Safety Report 6597230-X (Version None)
Quarter: 2010Q1

REPORT INFORMATION
  Report Type: 
  Country: None (occurrence: None)
  Receive Date: 20100223
  Receipt Date: 20100209
  Transmission Date: 20100710
  Serious: Yes (Other)
  Sender: FDA-Public Use
  Company Number: DE-GENENTECH-298381

PATIENT
  Sex: Female

DRUGS (8)
  1. LUCENTIS [Suspect]
     Indication: DRUG USE FOR UNKNOWN INDICATION
     Dosage: UNK
     Route: 031
     Dates: start: 20080903
  2. LUCENTIS [Suspect]
     Dosage: UNK
     Route: 031
     Dates: start: 20081008
  3. LUCENTIS [Suspect]
     Dosage: UNK
     Route: 031
     Dates: start: 20081105
  4. LUCENTIS [Suspect]
     Dosage: UNK
     Route: 031
     Dates: start: 20090225
  5. LUCENTIS [Suspect]
     Dosage: UNK
     Route: 031
     Dates: start: 20090325
  6. LUCENTIS [Suspect]
     Dosage: UNK
     Route: 031
     Dates: start: 20090429
  7. LUCENTIS [Suspect]
     Dosage: UNK
     Route: 031
     Dates: start: 20090708
  8. LUCENTIS [Suspect]
     Dosage: UNK
     Route: 031
     Dates: start: 20090812

REACTIONS (3)
  - DETACHMENT OF RETINAL PIGMENT EPITHELIUM [None]
  - MACULAR OEDEMA [None]
  - VISUAL ACUITY REDUCED [None]
